FAERS Safety Report 21280067 (Version 1)
Quarter: 2022Q3

REPORT INFORMATION
  Report Type: Spontaneous
  Country: US (occurrence: US)
  Receive Date: 20220901
  Receipt Date: 20220901
  Transmission Date: 20221026
  Serious: No
  Sender: FDA-Public Use
  Company Number: US-GSK-US2022124258

PATIENT
  Age: 38 Year
  Sex: Male

DRUGS (3)
  1. LAMICTAL [Suspect]
     Active Substance: LAMOTRIGINE
     Indication: Epilepsy
     Dosage: 25 MG, QD
     Route: 048
     Dates: end: 20220825
  2. LAMICTAL [Suspect]
     Active Substance: LAMOTRIGINE
     Dosage: 150 MG
  3. LAMICTAL [Suspect]
     Active Substance: LAMOTRIGINE
     Dosage: 200 MG

REACTIONS (1)
  - Product use issue [Unknown]

NARRATIVE: CASE EVENT DATE: 20220825
